FAERS Safety Report 5815662-1 (Version None)
Quarter: 2008Q3

REPORT INFORMATION
  Report Type: 
  Country: None (occurrence: None)
  Receive Date: 20080716
  Receipt Date: 20080703
  Transmission Date: 20090109
  Serious: Yes (Other)
  Sender: FDA-Public Use
  Company Number: 2006BI013125

PATIENT
  Age: 62 Year
  Sex: Female
  Weight: 99.7913 kg

DRUGS (16)
  1. AVONEX [Suspect]
     Indication: MULTIPLE SCLEROSIS
     Dosage: 30 UG; QW; IM, 30 UG; QW; IM
     Route: 030
     Dates: start: 20010829, end: 20030901
  2. AVONEX [Suspect]
     Indication: MULTIPLE SCLEROSIS
     Dosage: 30 UG; QW; IM, 30 UG; QW; IM
     Route: 030
     Dates: start: 20031001, end: 20060901
  3. LOTREL [Concomitant]
  4. EFFEXOR [Concomitant]
  5. PREDNISONE [Concomitant]
  6. DITROPAN [Concomitant]
  7. LEVOXYL [Concomitant]
  8. ASPIRIN [Concomitant]
  9. PROTONIX [Concomitant]
  10. METHOTREXATE [Concomitant]
  11. PEPCID [Concomitant]
  12. FOLATE [Concomitant]
  13. CRESTOR [Concomitant]
  14. BENICAR [Concomitant]
  15. HYDROCHLOROTHIAZIDE [Concomitant]
  16. WELLCHOL [Concomitant]

REACTIONS (2)
  - BREAST CANCER RECURRENT [None]
  - INFLUENZA LIKE ILLNESS [None]
